FAERS Safety Report 6185485-5 (Version None)
Quarter: 2009Q2

REPORT INFORMATION
  Report Type: 
  Country: None (occurrence: None)
  Receive Date: 20090511
  Receipt Date: 20090504
  Transmission Date: 20091009
  Serious: Yes (Other)
  Sender: FDA-Public Use
  Company Number: PHEH2009US04403

PATIENT

DRUGS (1)
  1. TEKTURNA [Suspect]
     Dosage: UNK, UNK

REACTIONS (1)
  - HEART RATE IRREGULAR [None]
